FAERS Safety Report 7948569-4 (Version None)
Quarter: 2011Q4

REPORT INFORMATION
  Report Type: 
  Country: None (occurrence: None)
  Receive Date: 20111130
  Receipt Date: 20111125
  Transmission Date: 20120403
  Serious: Yes (Death, Life-Threatening, Hospitalization, Disabling)
  Sender: FDA-Public Use
  Company Number: GB-SANOFI-AVENTIS-2011SA012596

PATIENT
  Sex: Male
  Weight: 86.4 kg

DRUGS (15)
  1. BLINDED THERAPY [Suspect]
     Route: 048
     Dates: start: 20110125
  2. FERROUS FUMARATE [Concomitant]
     Route: 048
     Dates: end: 20110205
  3. INDORAMIN [Concomitant]
     Indication: HYPERTENSION
     Route: 048
     Dates: end: 20110205
  4. DOCETAXEL [Suspect]
     Route: 041
     Dates: start: 20110125
  5. PREDNISONE [Suspect]
     Route: 065
     Dates: start: 20110125
  6. OMEPRAZOLE [Concomitant]
     Route: 048
     Dates: end: 20110205
  7. DOCETAXEL [Suspect]
     Route: 041
     Dates: start: 20101210
  8. PREDNISONE [Suspect]
     Route: 065
     Dates: start: 20101001
  9. METOCLOPRAMIDE [Concomitant]
     Indication: ANTIEMETIC SUPPORTIVE CARE
     Route: 048
     Dates: end: 20110204
  10. ENOXAPARIN [Concomitant]
     Indication: THROMBOSIS PROPHYLAXIS
     Route: 065
  11. DOCETAXEL [Suspect]
     Indication: PROSTATE CANCER
     Route: 041
     Dates: start: 20101001
  12. PREDNISONE [Suspect]
     Indication: PROSTATE CANCER
     Route: 065
     Dates: start: 20101210
  13. BLINDED THERAPY [Suspect]
     Route: 048
     Dates: start: 20101210
  14. MORPHINE SULFATE [Concomitant]
     Route: 048
     Dates: end: 20110205
  15. BLINDED THERAPY [Suspect]
     Indication: PROSTATE CANCER
     Route: 048
     Dates: start: 20101001

REACTIONS (4)
  - PULMONARY EMBOLISM [None]
  - PROSTATE CANCER METASTATIC [None]
  - LOWER RESPIRATORY TRACT INFECTION [None]
  - DYSPNOEA [None]
